FAERS Safety Report 10378275 (Version 1)
Quarter: 2014Q3

REPORT INFORMATION
  Report Type: Spontaneous
  Country: GB (occurrence: None)
  Receive Date: 20140807
  Receipt Date: 20140807
  Transmission Date: 20150326
  Serious: Yes (Other)
  Sender: FDA-Public Use
  Company Number: NGX_02526_2014

PATIENT
  Age: 74 Year
  Sex: Male
  Weight: 90 kg

DRUGS (9)
  1. SALBUTAMOL [Concomitant]
     Active Substance: ALBUTEROL
  2. PARACETAMOL [Concomitant]
     Active Substance: ACETAMINOPHEN
  3. QUTENZA [Suspect]
     Active Substance: CAPSAICIN
     Indication: ARTHRITIS
     Dosage: ([3-4 TIMES, DAILY AS REQUIRED, DF] TRANSDERMAL)
     Route: 062
     Dates: start: 20140625
  4. SIMVASTATIN. [Concomitant]
     Active Substance: SIMVASTATIN
  5. MIGRALEVE [Concomitant]
     Active Substance: ACETAMINOPHEN\BUCLIZINE HYDROCHLORIDE\CODEINE
  6. PROPRANOLOL [Concomitant]
     Active Substance: PROPRANOLOL\PROPRANOLOL HYDROCHLORIDE
  7. QUTENZA [Suspect]
     Active Substance: CAPSAICIN
     Indication: CARPAL TUNNEL SYNDROME
     Dosage: ([3-4 TIMES, DAILY AS REQUIRED, DF] TRANSDERMAL)
     Route: 062
     Dates: start: 20140625
  8. QUTENZA [Suspect]
     Active Substance: CAPSAICIN
     Indication: OFF LABEL USE
     Dosage: ([3-4 TIMES, DAILY AS REQUIRED, DF] TRANSDERMAL)
     Route: 062
     Dates: start: 20140625
  9. FLUTIFORM [Concomitant]
     Active Substance: FLUTICASONE PROPIONATE\FORMOTEROL FUMARATE

REACTIONS (2)
  - Photosensitivity reaction [None]
  - Burning sensation [None]

NARRATIVE: CASE EVENT DATE: 20140628
